FAERS Safety Report 10547869 (Version 1)
Quarter: 2014Q4

REPORT INFORMATION
  Report Type: Spontaneous
  Country: US (occurrence: None)
  Receive Date: 20141027
  Receipt Date: 20141027
  Transmission Date: 20150529
  Serious: Yes (Death)
  Sender: FDA-Public Use
  Company Number: None

PATIENT
  Age: 49 Year
  Sex: Male
  Weight: 90.72 kg

DRUGS (1)
  1. ERBITUX [Suspect]
     Active Substance: CETUXIMAB
     Indication: NEOPLASM MALIGNANT
     Dates: start: 20140823, end: 20140823

REACTIONS (7)
  - Dyspnoea [None]
  - Speech disorder [None]
  - Catheter site pruritus [None]
  - Fall [None]
  - Protrusion tongue [None]
  - Exophthalmos [None]
  - Cough [None]

NARRATIVE: CASE EVENT DATE: 20140823
